FAERS Safety Report 7049903-2 (Version None)
Quarter: 2010Q4

REPORT INFORMATION
  Report Type: 
  Country: None (occurrence: None)
  Receive Date: 20101018
  Receipt Date: 20101011
  Transmission Date: 20110411
  Serious: Yes (Other)
  Sender: FDA-Public Use
  Company Number: US-BAYER-201036922NA

PATIENT
  Sex: Female

DRUGS (2)
  1. YAZ [Suspect]
     Indication: PRODUCT USED FOR UNKNOWN INDICATION
     Dates: start: 20070101
  2. YAZ [Suspect]
     Dates: start: 20100301, end: 20100801

REACTIONS (3)
  - INJURY [None]
  - PAIN [None]
  - PULMONARY EMBOLISM [None]
